FAERS Safety Report 24580038 (Version 3)
Quarter: 2024Q4

REPORT INFORMATION
  Report Type: Spontaneous
  Country: CA (occurrence: CA)
  Receive Date: 20241105
  Receipt Date: 20241230
  Transmission Date: 20250115
  Serious: Yes (Other)
  Sender: PFIZER
  Company Number: CA-PFIZER INC-202300314513

PATIENT
  Age: 70 Year
  Sex: Female

DRUGS (2)
  1. ABRILADA [Suspect]
     Active Substance: ADALIMUMAB-AFZB
     Indication: Rheumatoid arthritis
     Dosage: 40 MG, EVERY 3 WEEK
     Route: 058
     Dates: start: 20231030
  2. HUMIRA [Concomitant]
     Active Substance: ADALIMUMAB
     Dosage: 1 DF, EVERY 3 WEEKS (1 PEN LEFT. NEXT DOSE OCT 9TH)
     Dates: start: 2013

REACTIONS (2)
  - Knee arthroplasty [Recovering/Resolving]
  - Off label use [Unknown]

NARRATIVE: CASE EVENT DATE: 20240101
